FAERS Safety Report 9717787 (Version 1)
Quarter: 2013Q4

REPORT INFORMATION
  Report Type: Spontaneous
  Country: SK (occurrence: SK)
  Receive Date: 20131127
  Receipt Date: 20131127
  Transmission Date: 20140711
  Serious: Yes (Hospitalization)
  Sender: FDA-Public Use
  Company Number: SK-GLAXOSMITHKLINE-B0948080A

PATIENT
  Age: 85 Year
  Sex: Female

DRUGS (2)
  1. ZINNAT [Suspect]
     Indication: BRONCHITIS
     Dosage: 500MG TWICE PER DAY
  2. FLUCONAZOLE [Suspect]
     Indication: BRONCHITIS
     Dosage: 100MG PER DAY
     Route: 048

REACTIONS (2)
  - Dyspepsia [Recovering/Resolving]
  - Vomiting [Unknown]
